FAERS Safety Report 9154119 (Version 1)
Quarter: 2013Q1

REPORT INFORMATION
  Report Type: Spontaneous
  Country: US (occurrence: None)
  Receive Date: 20130308
  Receipt Date: 20130308
  Transmission Date: 20140127
  Serious: Yes (Other)
  Sender: FDA-Public Use
  Company Number: None

PATIENT
  Age: 28 Year
  Sex: Female
  Weight: 89.36 kg

DRUGS (2)
  1. ACETAZOLAMIDE [Suspect]
     Indication: FLUID RETENTION
     Dosage: 250MG  2 X DAILY  ORAL
     Route: 048
     Dates: start: 20130207, end: 20130213
  2. ACETAZOLAMIDE [Suspect]
     Indication: EYE DISORDER
     Dosage: 250MG  2 X DAILY  ORAL
     Route: 048
     Dates: start: 20130207, end: 20130213

REACTIONS (10)
  - Lymphadenopathy [None]
  - Pharyngeal oedema [None]
  - Eye swelling [None]
  - Headache [None]
  - Nausea [None]
  - Dysgeusia [None]
  - Depressed level of consciousness [None]
  - Paraesthesia [None]
  - Pyrexia [None]
  - Rash [None]
